FAERS Safety Report 23543564 (Version 1)
Quarter: 2024Q1

REPORT INFORMATION
  Report Type: Other
  Country: GB (occurrence: GB)
  Receive Date: 20240220
  Receipt Date: 20240220
  Transmission Date: 20240410
  Serious: Yes (Life-Threatening, Disabling)
  Sender: FDA-Public Use
  Company Number: GB-MACLEODS PHARMA EU LTD-MAC2024045905

PATIENT

DRUGS (1)
  1. ARIPIPRAZOLE [Suspect]
     Active Substance: ARIPIPRAZOLE
     Indication: Product used for unknown indication
     Dosage: UNK
     Route: 065

REACTIONS (14)
  - Balance disorder [Unknown]
  - Burning sensation [Unknown]
  - Vertigo [Unknown]
  - Decreased interest [Unknown]
  - Anhedonia [Unknown]
  - Tooth loss [Unknown]
  - Undersensing [Unknown]
  - Loss of dreaming [Unknown]
  - Ageusia [Unknown]
  - Loss of employment [Unknown]
  - Asthenia [Unknown]
  - Loss of libido [Unknown]
  - Tremor [Unknown]
  - Insomnia [Unknown]
